FAERS Safety Report 6558493-X (Version None)
Quarter: 2010Q1

REPORT INFORMATION
  Report Type: 
  Country: None (occurrence: None)
  Receive Date: 20100129
  Receipt Date: 20100126
  Transmission Date: 20100710
  Serious: Yes (Life-Threatening)
  Sender: FDA-Public Use
  Company Number: IT-TEVA-222165ISR

PATIENT
  Sex: Female

DRUGS (1)
  1. OXALIPLATIN [Suspect]

REACTIONS (6)
  - ANURIA [None]
  - ATRIAL FIBRILLATION [None]
  - DIARRHOEA [None]
  - MALOCCLUSION [None]
  - OLIGURIA [None]
  - PYREXIA [None]
